FAERS Safety Report 10183946 (Version 1)
Quarter: 2014Q2

REPORT INFORMATION
  Report Type: Spontaneous
  Country: US (occurrence: US)
  Receive Date: 20140520
  Receipt Date: 20140520
  Transmission Date: 20141212
  Serious: Yes (Other)
  Sender: FDA-Public Use
  Company Number: US-GLAXOSMITHKLINE-A1060473A

PATIENT
  Age: 73 Year
  Sex: Female

DRUGS (5)
  1. VOTRIENT [Suspect]
     Indication: PULMONARY MASS
     Dosage: 800MG PER DAY
     Route: 048
     Dates: start: 20131213, end: 201401
  2. APIXABAN [Concomitant]
  3. HYDROCHLOROTHIAZIDE [Concomitant]
  4. TAZTIA [Concomitant]
  5. TRAMADOL [Concomitant]

REACTIONS (5)
  - Hepatic enzyme increased [Recovered/Resolved]
  - Aspartate aminotransferase increased [Recovered/Resolved]
  - Alanine aminotransferase increased [Recovered/Resolved]
  - Blood alkaline phosphatase increased [Unknown]
  - Bile duct stent insertion [Unknown]
